FAERS Safety Report 6033358-0 (Version None)
Quarter: 2009Q1

REPORT INFORMATION
  Report Type: 
  Country: None (occurrence: None)
  Receive Date: 20090105
  Receipt Date: 20080909
  Transmission Date: 20090719
  Serious: Yes (Other)
  Sender: FDA-Public Use
  Company Number: US-001857

PATIENT
  Age: 45 Year
  Sex: Female
  Weight: 126.8 kg

DRUGS (12)
  1. MULTIHANCE [Suspect]
     Indication: NUCLEAR MAGNETIC RESONANCE IMAGING
     Dosage: 25 ML QD INTRAVENOUS (NOT OTHERWISE SPECIFIED0
     Route: 042
     Dates: start: 20060418, end: 20060418
  2. CONTRAST AGENT UNIDENTIFIED (UNKNOWN) [Suspect]
     Indication: ANGIOGRAM
  3. CONTRAST AGENT UNIDENTIFIED (UNKNOWN) [Suspect]
     Indication: ANGIOGRAM
  4. GLIPIZIDE [Concomitant]
  5. NEURONTIN [Concomitant]
  6. ACTOS [Concomitant]
  7. CALCITRIOL [Concomitant]
  8. LIPITOR [Concomitant]
  9. NON-IONIC CONTRAST AGENT UNIDENTIFIED [Concomitant]
  10. OMNIPAQUE 350 [Concomitant]
  11. ISOVUE-370 [Concomitant]
  12. ISOVUE-300 [Concomitant]

REACTIONS (1)
  - NEPHROGENIC SYSTEMIC FIBROSIS [None]
